FAERS Safety Report 18509647 (Version 1)
Quarter: 2020Q4

REPORT INFORMATION
  Report Type: Spontaneous
  Country: US (occurrence: US)
  Receive Date: 20201115
  Receipt Date: 20201115
  Transmission Date: 20210114
  Serious: No
  Sender: FDA-Public Use
  Company Number: None

PATIENT
  Age: 59 Year
  Sex: Female

DRUGS (1)
  1. NUCALA [Suspect]
     Active Substance: MEPOLIZUMAB
     Dosage: OTHER
     Route: 058
     Dates: start: 20201005

REACTIONS (3)
  - Alopecia [None]
  - Anosmia [None]
  - Therapy cessation [None]

NARRATIVE: CASE EVENT DATE: 20201005
